FAERS Safety Report 8936383 (Version 1)
Quarter: 2012Q4

REPORT INFORMATION
  Report Type: 
  Country: DE (occurrence: DE)
  Receive Date: 20121130
  Receipt Date: 20121130
  Transmission Date: 20130627
  Serious: Yes (Death, Other)
  Sender: FDA-Public Use
  Company Number: DE-ELI_LILLY_AND_COMPANY-DE201211005226

PATIENT
  Age: 53 Year
  Sex: Male

DRUGS (21)
  1. ZYPREXA [Suspect]
     Indication: SCHIZOPHRENIA
     Dosage: 5 mg, unknown
     Route: 048
     Dates: start: 20120518, end: 20120531
  2. ZYPREXA [Suspect]
     Dosage: 2.5 mg, unknown
     Route: 048
     Dates: start: 20120601, end: 20120601
  3. MIRTAZAPIN [Concomitant]
     Dosage: 30 mg, UNK
     Route: 048
     Dates: start: 20120301, end: 20120602
  4. CITALOPRAM [Concomitant]
     Dosage: 20 mg, UNK
     Route: 048
     Dates: start: 20120301, end: 20120529
  5. SEROQUEL [Concomitant]
     Dosage: 50 mg, UNK
     Route: 048
     Dates: start: 20120530, end: 20120531
  6. SEROQUEL [Concomitant]
     Dosage: 75 mg, UNK
     Route: 048
     Dates: start: 20120601, end: 20120602
  7. SELEGILIN [Concomitant]
     Dosage: 5 mg, UNK
     Route: 048
     Dates: start: 20120301, end: 20120602
  8. COMTESS [Concomitant]
     Dosage: 1000 mg, UNK
     Route: 048
     Dates: start: 20120301, end: 20120602
  9. MADOPAR [Concomitant]
     Dosage: 100 mg, UNK
     Route: 048
     Dates: start: 20120301, end: 20120602
  10. LEVODOPA [Concomitant]
     Dosage: 1 DF, UNK
     Route: 048
     Dates: start: 20120301, end: 20120602
  11. CLARIUM [Concomitant]
     Dosage: 250 mg, UNK
     Route: 048
     Dates: start: 20120301, end: 20120529
  12. CLARIUM [Concomitant]
     Dosage: 200 mg, UNK
     Route: 048
     Dates: start: 20120530, end: 20120531
  13. CLARIUM [Concomitant]
     Dosage: 150 mg, UNK
     Route: 048
     Dates: start: 20120601, end: 20120602
  14. TOREM [Concomitant]
     Dosage: 20 mg, UNK
     Route: 048
     Dates: start: 20120301, end: 20120529
  15. TOREM [Concomitant]
     Dosage: 5 mg, UNK
     Route: 048
     Dates: start: 20120530, end: 20120602
  16. XIPAMID [Concomitant]
     Dosage: 10 mg, UNK
     Route: 048
     Dates: start: 20120301, end: 20120602
  17. ALLOPURINOL [Concomitant]
     Dosage: 300 mg, UNK
     Route: 048
     Dates: start: 20120301, end: 20120602
  18. KALINOR [Concomitant]
     Dosage: 1 DF, UNK
     Route: 048
     Dates: start: 20120524, end: 20120527
  19. KALINOR [Concomitant]
     Dosage: 1 DF, UNK
     Dates: start: 20120528, end: 20120602
  20. CLEXANE [Concomitant]
     Dosage: 0.4 ml, UNK
     Route: 058
     Dates: start: 20120601, end: 20120602
  21. CEFTRIAXON [Concomitant]
     Dosage: 2000 mg, UNK
     Route: 048
     Dates: start: 20120526, end: 20120601

REACTIONS (6)
  - Cardiac arrest [Fatal]
  - Tachypnoea [Fatal]
  - Loss of consciousness [Fatal]
  - Pulmonary embolism [Fatal]
  - Inflammation [Not Recovered/Not Resolved]
  - Parkinson^s disease [Not Recovered/Not Resolved]
